FAERS Safety Report 22968962 (Version 2)
Quarter: 2023Q4

REPORT INFORMATION
  Report Type: Spontaneous
  Country: US (occurrence: US)
  Receive Date: 20230922
  Receipt Date: 20231106
  Transmission Date: 20240109
  Serious: Yes (Hospitalization, Other)
  Sender: FDA-Public Use
  Company Number: US-002147023-PHEH2018US051755

PATIENT
  Age: 69 Year
  Sex: Female

DRUGS (19)
  1. AMLODIPINE AND VALSARTAN [Suspect]
     Active Substance: AMLODIPINE\VALSARTAN
     Indication: Blood pressure abnormal
     Dosage: UNK
     Route: 065
  2. BENICAR [Suspect]
     Active Substance: OLMESARTAN MEDOXOMIL
     Indication: Product used for unknown indication
     Route: 065
  3. CARDIZEM CD [Suspect]
     Active Substance: DILTIAZEM HYDROCHLORIDE
     Indication: Blood pressure abnormal
     Route: 065
  4. DIOVAN [Suspect]
     Active Substance: VALSARTAN
     Dosage: 80 MG, QD
     Route: 065
     Dates: start: 2023
  5. DIOVAN [Suspect]
     Active Substance: VALSARTAN
     Dosage: 160 MG, QD
     Route: 065
     Dates: start: 2023
  6. DIOVAN [Suspect]
     Active Substance: VALSARTAN
     Indication: Blood pressure systolic increased
     Dosage: UNK
     Route: 065
     Dates: start: 202202
  7. HYDRALAZINE [Suspect]
     Active Substance: HYDRALAZINE HYDROCHLORIDE
     Indication: Blood pressure abnormal
     Dosage: UNK
     Route: 065
  8. LISINOPRIL [Suspect]
     Active Substance: LISINOPRIL
     Indication: Blood pressure abnormal
     Dosage: UNK
     Route: 065
  9. LOPRESSOR [Suspect]
     Active Substance: METOPROLOL TARTRATE
     Indication: Blood pressure abnormal
     Dosage: UNK
     Route: 065
  10. LOSARTAN [Suspect]
     Active Substance: LOSARTAN
     Indication: Blood pressure abnormal
     Dosage: UNK
     Route: 065
  11. NIFEDIPINE [Suspect]
     Active Substance: NIFEDIPINE
     Indication: Blood pressure abnormal
     Dosage: UNK
     Route: 065
  12. TENORMIN [Suspect]
     Active Substance: ATENOLOL
     Indication: Blood pressure abnormal
     Dosage: UNK
     Route: 065
  13. ALBUTEROL [Concomitant]
     Active Substance: ALBUTEROL
     Indication: Product used for unknown indication
     Route: 065
  14. ASPIRIN [Concomitant]
     Active Substance: ASPIRIN
     Indication: Product used for unknown indication
     Dosage: 81 MG
     Route: 065
  15. CEPHALEXIN [Concomitant]
     Active Substance: CEPHALEXIN
     Indication: Product used for unknown indication
     Route: 065
  16. CEPHALEXIN [Concomitant]
     Active Substance: CEPHALEXIN
     Indication: Product used for unknown indication
     Route: 065
  17. PULMICORT TURBUHALER [Concomitant]
     Active Substance: BUDESONIDE
     Indication: Product used for unknown indication
     Route: 065
  18. VITAMIN D3 [Concomitant]
     Active Substance: CHOLECALCIFEROL
     Indication: Product used for unknown indication
     Route: 065
  19. VITAMIN D3 [Concomitant]
     Active Substance: CHOLECALCIFEROL
     Indication: Product used for unknown indication
     Route: 065

REACTIONS (19)
  - Cerebrovascular accident [Unknown]
  - Uterine cancer [Unknown]
  - Pneumonia [Unknown]
  - Sepsis [Unknown]
  - Hypertensive crisis [Unknown]
  - Peripheral swelling [Unknown]
  - Arthritis [Unknown]
  - Flushing [Unknown]
  - Erythema [Unknown]
  - Blood pressure increased [Unknown]
  - Rash macular [Unknown]
  - Insomnia [Unknown]
  - Arthralgia [Unknown]
  - Cough [Unknown]
  - Dizziness [Unknown]
  - Headache [Unknown]
  - Blood pressure systolic [Unknown]
  - Upper respiratory tract infection [Unknown]
  - Drug ineffective [Unknown]

NARRATIVE: CASE EVENT DATE: 20220201
